FAERS Safety Report 18437626 (Version 1)
Quarter: 2020Q4

REPORT INFORMATION
  Report Type: Spontaneous
  Country: US (occurrence: US)
  Receive Date: 20201028
  Receipt Date: 20201028
  Transmission Date: 20210114
  Serious: No
  Sender: FDA-Public Use
  Company Number: US-ABBVIE-20K-163-3575481-00

PATIENT
  Sex: Female
  Weight: 61.74 kg

DRUGS (3)
  1. OMEPRAZOLE. [Concomitant]
     Active Substance: OMEPRAZOLE
     Indication: GASTROOESOPHAGEAL REFLUX DISEASE
  2. SKYRIZI [Suspect]
     Active Substance: RISANKIZUMAB-RZAA
     Indication: PSORIATIC ARTHROPATHY
     Route: 058
     Dates: start: 2019, end: 202007
  3. MOTEGRITY [Concomitant]
     Active Substance: PRUCALOPRIDE SUCCINATE
     Indication: CONSTIPATION

REACTIONS (4)
  - Psoriatic arthropathy [Not Recovered/Not Resolved]
  - Gastrointestinal disorder [Unknown]
  - Constipation [Unknown]
  - Drug ineffective [Not Recovered/Not Resolved]

NARRATIVE: CASE EVENT DATE: 2020
